FAERS Safety Report 10947978 (Version 3)
Quarter: 2015Q2

REPORT INFORMATION
  Report Type: Report from Study
  Country: CN (occurrence: CN)
  Receive Date: 20150324
  Receipt Date: 20150511
  Transmission Date: 20150821
  Serious: Yes (Hospitalization)
  Sender: FDA-Public Use
  Company Number: CN-ASTRAZENECA-2015SE25273

PATIENT
  Age: 39 Year
  Sex: Male

DRUGS (2)
  1. BYETTA [Suspect]
     Active Substance: EXENATIDE
     Indication: TYPE 2 DIABETES MELLITUS
     Route: 058
     Dates: start: 20150126, end: 20150209
  2. METFORMIN [Concomitant]
     Active Substance: METFORMIN HYDROCHLORIDE

REACTIONS (6)
  - Abdominal discomfort [Unknown]
  - Hypoglycaemia [Unknown]
  - Weight decreased [Recovered/Resolved]
  - Discomfort [Unknown]
  - Nasopharyngitis [Unknown]
  - Hunger [Unknown]

NARRATIVE: CASE EVENT DATE: 201501
